FAERS Safety Report 5475873-4 (Version None)
Quarter: 2007Q3

REPORT INFORMATION
  Report Type: 
  Country: None (occurrence: None)
  Receive Date: 20070925
  Receipt Date: 20070524
  Transmission Date: 20080115
  Serious: Yes (Hospitalization)
  Sender: FDA-Public Use
  Company Number: 07-001167

PATIENT
  Age: 60 Year
  Sex: Male

DRUGS (3)
  1. DOVONEX [Suspect]
     Indication: PSORIASIS
     Dosage: QD, TOPICAL
     Route: 061
     Dates: start: 20070101, end: 20070101
  2. DOVONEX [Suspect]
     Indication: PSORIASIS
     Dosage: QD, TOPICAL
     Route: 061
     Dates: start: 20070101, end: 20070101
  3. CORTICOSTEROID NOS (CORTICOSTEROID NOS) [Concomitant]

REACTIONS (1)
  - DERMATITIS CONTACT [None]
